FAERS Safety Report 4383046-1 (Version None)
Quarter: 2004Q2

REPORT INFORMATION
  Report Type: 
  Country: None (occurrence: None)
  Receive Date: 20040610
  Receipt Date: 20030505
  Transmission Date: 20050107
  Serious: No
  Sender: FDA-Public Use
  Company Number: TAP2003Q00807

PATIENT
  Age: 38 Year
  Sex: Female
  Weight: 63.5036 kg

DRUGS (3)
  1. LUPRON [Suspect]
     Indication: IN VITRO FERTILISATION
     Dosage: 0.5 MG, 1 IN 1 D, UNKNOWN
     Dates: start: 20030303, end: 20030317
  2. PROGESTERONE [Concomitant]
  3. ESTRADIOL [Concomitant]

REACTIONS (4)
  - ABORTION SPONTANEOUS [None]
  - FOETAL CARDIAC DISORDER [None]
  - FOETAL DISORDER [None]
  - FOETAL GROWTH RETARDATION [None]
